FAERS Safety Report 22586334 (Version 1)
Quarter: 2023Q2

REPORT INFORMATION
  Report Type: Spontaneous
  Country: US (occurrence: US)
  Receive Date: 20230611
  Receipt Date: 20230611
  Transmission Date: 20230722
  Serious: No
  Sender: FDA-Public Use
  Company Number: US-SA-SAC20230609000029

PATIENT
  Age: 56 Year
  Sex: Female

DRUGS (17)
  1. AUBAGIO [Suspect]
     Active Substance: TERIFLUNOMIDE
     Indication: Multiple sclerosis
     Dosage: 14 MG, QD
     Route: 048
     Dates: start: 20150102, end: 202304
  2. AIMOVIG [Concomitant]
     Active Substance: ERENUMAB-AOOE
  3. RESTASIS [Concomitant]
     Active Substance: CYCLOSPORINE
  4. PREDNISOLONE [Concomitant]
     Active Substance: PREDNISOLONE
     Dosage: 10MG
  5. NEPAFENAC [Concomitant]
     Active Substance: NEPAFENAC
     Dosage: 10MG
  6. COMPAZINE [Concomitant]
     Active Substance: PROCHLORPERAZINE MALEATE
     Dosage: 10MG
  7. CLARITIN [Concomitant]
     Active Substance: LORATADINE
     Dosage: 10MG
  8. SIMVASTATIN [Concomitant]
     Active Substance: SIMVASTATIN
     Dosage: 5MG
  9. ELIQUIS [Concomitant]
     Active Substance: APIXABAN
     Dosage: 10MG
  10. SINGULAIR [Concomitant]
     Active Substance: MONTELUKAST SODIUM
     Dosage: 125MG
  11. CARVEDILOL [Concomitant]
     Active Substance: CARVEDILOL
     Dosage: 100MG
  12. ZOLOFT [Concomitant]
     Active Substance: SERTRALINE HYDROCHLORIDE
  13. POTASSIUM CHLORIDE [Concomitant]
     Active Substance: POTASSIUM CHLORIDE
     Dosage: 075MG
  14. TRULICITY [Concomitant]
     Active Substance: DULAGLUTIDE
     Dosage: 100MG
  15. PROAIR HFA [Concomitant]
     Active Substance: ALBUTEROL SULFATE
     Dosage: 075MG
  16. D3 VITAMIN [Concomitant]
  17. PREVACID [Concomitant]
     Active Substance: LANSOPRAZOLE

REACTIONS (1)
  - Dizziness [Unknown]
